FAERS Safety Report 13520862 (Version 1)
Quarter: 2017Q2

REPORT INFORMATION
  Report Type: Report from Study
  Country: BR (occurrence: BR)
  Receive Date: 20170508
  Receipt Date: 20170508
  Transmission Date: 20170830
  Serious: Yes (Other)
  Sender: FDA-Public Use
  Company Number: BR-BEH-2017080124

PATIENT
  Age: 46 Year
  Sex: Female

DRUGS (3)
  1. ALBUMIN HUMAN (GENERIC) [Suspect]
     Active Substance: ALBUMIN HUMAN
     Indication: PERITONITIS BACTERIAL
     Dosage: THIRD DAY OF TREATMENT
     Route: 042
  2. ALBUMIN HUMAN (GENERIC) [Suspect]
     Active Substance: ALBUMIN HUMAN
     Indication: HEPATORENAL SYNDROME
     Dosage: FIRST DAY OF TREATMENT
     Route: 042
  3. OCTREOTIDE. [Suspect]
     Active Substance: OCTREOTIDE
     Route: 065

REACTIONS (3)
  - Drug ineffective [Unknown]
  - Anuria [Recovered/Resolved]
  - Azotaemia [Recovered/Resolved]
